FAERS Safety Report 8736709 (Version 2)
Quarter: 2013Q4

REPORT INFORMATION
  Report Type: Spontaneous
  Country: US (occurrence: US)
  Receive Date: 20120822
  Receipt Date: 20131115
  Transmission Date: 20140711
  Serious: No
  Sender: FDA-Public Use
  Company Number: US-PFIZER INC-2012202231

PATIENT
  Age: 62 Year
  Sex: Male
  Weight: 90.7 kg

DRUGS (12)
  1. LYRICA [Suspect]
     Indication: FIBROMYALGIA
     Dosage: 75 MG, DAILY
  2. LISINOPRIL [Concomitant]
     Indication: BLOOD PRESSURE ABNORMAL
     Dosage: 5 MG, DAILY
  3. HYDROCHLOROTHIAZIDE [Concomitant]
     Indication: BLOOD PRESSURE ABNORMAL
     Dosage: 12.5 MG, DAILY
  4. PROVENTIL HFA [Concomitant]
     Dosage: 108 (80 BASE) MCG/ACT
  5. VENTOLIN HFA [Concomitant]
     Dosage: 108 (80 BASE) MCG/ACT
  6. VITAMIN C [Concomitant]
     Dosage: 100 MG, UNK
  7. ASPIRIN [Concomitant]
     Dosage: 81 MG, UNK
  8. CALCIUM WITH VITAMIN D [Concomitant]
     Dosage: 250-100MG UNIT PER TABLET
  9. CHONDROITIN/GLUCOSAMINE [Concomitant]
     Dosage: 600-400 MG
  10. XOPENEX [Concomitant]
     Dosage: 46 MCG/ACT
  11. ZOCOR [Concomitant]
     Dosage: 20 MG, UNK
  12. VITAMIN E [Concomitant]
     Dosage: 100 UNIT

REACTIONS (3)
  - Weight increased [Unknown]
  - Pain [Unknown]
  - Therapeutic response unexpected [Unknown]
